FAERS Safety Report 9122488 (Version 2)
Quarter: 2013Q3

REPORT INFORMATION
  Report Type: Report from Study
  Country: MX (occurrence: MX)
  Receive Date: 20130227
  Receipt Date: 20130812
  Transmission Date: 20140515
  Serious: Yes (Other)
  Sender: FDA-Public Use
  Company Number: PHHY2013MX018385

PATIENT
  Sex: Female

DRUGS (3)
  1. GLIVEC [Suspect]
     Indication: CHRONIC MYELOID LEUKAEMIA
     Dosage: 600 MG, UNK
     Dates: start: 20120820
  2. GLIVEC [Suspect]
     Dosage: 400 MG, UNK
     Dates: start: 20121218
  3. GLIVEC [Suspect]
     Dosage: 400 MG, UKN

REACTIONS (4)
  - Multi-organ failure [Unknown]
  - Blast crisis in myelogenous leukaemia [Unknown]
  - Sepsis [Unknown]
  - Exposure during pregnancy [Unknown]
